FAERS Safety Report 23979591 (Version 1)
Quarter: 2024Q2

REPORT INFORMATION
  Report Type: Report from Study
  Country: US (occurrence: US)
  Receive Date: 20240616
  Receipt Date: 20240616
  Transmission Date: 20240715
  Serious: Yes (Other)
  Sender: FDA-Public Use
  Company Number: US-JNJFOC-20240626852

PATIENT
  Age: 71 Year
  Sex: Female

DRUGS (4)
  1. SPRAVATO [Suspect]
     Active Substance: ESKETAMINE
     Indication: Depression
     Dosage: 56 MG, TOTAL 2 DOSES
     Dates: start: 20240102, end: 20240104
  2. SPRAVATO [Suspect]
     Active Substance: ESKETAMINE
     Dosage: 84 MG, TOTAL 39 DOSES
     Dates: start: 20240109, end: 20240612
  3. SPRAVATO [Suspect]
     Active Substance: ESKETAMINE
  4. SPRAVATO [Suspect]
     Active Substance: ESKETAMINE

REACTIONS (3)
  - Lung neoplasm malignant [Unknown]
  - Depression [Unknown]
  - Coagulopathy [Unknown]

NARRATIVE: CASE EVENT DATE: 20240601
